FAERS Safety Report 21919296 (Version 1)
Quarter: 2023Q1

REPORT INFORMATION
  Report Type: Spontaneous
  Country: DE (occurrence: DE)
  Receive Date: 20230127
  Receipt Date: 20230127
  Transmission Date: 20230417
  Serious: Yes (Other)
  Sender: FDA-Public Use
  Company Number: DE-UCBSA-2023001563

PATIENT
  Age: 43 Year
  Sex: Female

DRUGS (7)
  1. LEVETIRACETAM [Suspect]
     Active Substance: LEVETIRACETAM
     Indication: Epilepsy
     Dosage: 4000 MG, QD (4000 MILLIGRAM, ONCE DAILY (QD))
     Route: 065
     Dates: start: 2005
  2. FENFLURAMINE HYDROCHLORIDE [Suspect]
     Active Substance: FENFLURAMINE HYDROCHLORIDE
     Indication: Severe myoclonic epilepsy of infancy
     Dosage: 52 MG, QD (26 MILLIGRAM, 2X/DAY (BID))
     Route: 065
  3. CLOBAZAM [Concomitant]
     Active Substance: CLOBAZAM
     Indication: Product used for unknown indication
     Dosage: 20 MG (2 X 10 MG)
     Route: 065
     Dates: start: 202003
  4. STIRIPENTOL [Concomitant]
     Active Substance: STIRIPENTOL
     Indication: Product used for unknown indication
     Dosage: 250 MG (STIRIPENTOL 2X 250 MG WITH CLB, DOSED FOR 4 WEEKS)
     Route: 065
     Dates: start: 202003
  5. TOPIRAMATE [Concomitant]
     Active Substance: TOPIRAMATE
     Indication: Product used for unknown indication
     Dosage: UNK (150 0 200 M)
     Route: 065
     Dates: start: 202003
  6. VALPROATE CHRONO ZENTIVA [Concomitant]
     Indication: Product used for unknown indication
     Dosage: 1000 MG, QD (500 MILLIGRAM, 2X/DAY (BID))
     Route: 065
     Dates: start: 202003
  7. EPIDIOLEX [Concomitant]
     Active Substance: CANNABIDIOL
     Indication: Product used for unknown indication
     Dosage: 100 MG, Q72H (EVERY 3 DAYS ADD-ON)
     Route: 065
     Dates: start: 202003

REACTIONS (2)
  - Generalised tonic-clonic seizure [Recovered/Resolved]
  - Off label use [Unknown]
